FAERS Safety Report 21094026 (Version 3)
Quarter: 2022Q4

REPORT INFORMATION
  Report Type: Spontaneous
  Country: NL (occurrence: NL)
  Receive Date: 20220718
  Receipt Date: 20221214
  Transmission Date: 20230112
  Serious: Yes (Death, Life-Threatening, Hospitalization, Other)
  Sender: FDA-Public Use
  Company Number: NL-SYNTHON BV-IN51PV22_64922

PATIENT
  Age: 61 Year
  Sex: Male

DRUGS (2)
  1. CLOZAPINE [Suspect]
     Active Substance: CLOZAPINE
     Indication: Schizophrenia
     Dosage: FOR SEVERAL DECADES
     Route: 065
  2. CLOZAPINE [Suspect]
     Active Substance: CLOZAPINE
     Dosage: DOSE WAS HALVED
     Route: 065

REACTIONS (8)
  - Pneumonia aspiration [Fatal]
  - Gastrointestinal hypomotility [Fatal]
  - Ileus paralytic [Fatal]
  - Volvulus [Fatal]
  - Volvulus of small bowel [Fatal]
  - Faecaloma [Fatal]
  - Intestinal ischaemia [Fatal]
  - Pyrexia [Unknown]
